FAERS Safety Report 25098093 (Version 1)
Quarter: 2025Q1

REPORT INFORMATION
  Report Type: Spontaneous
  Country: FR (occurrence: FR)
  Receive Date: 20250320
  Receipt Date: 20250320
  Transmission Date: 20250409
  Serious: Yes (Hospitalization, Other)
  Sender: CHEPLAPHARM
  Company Number: None

PATIENT
  Age: 54 Year
  Sex: Female

DRUGS (16)
  1. OLANZAPINE [Suspect]
     Active Substance: OLANZAPINE
     Indication: Schizoaffective disorder bipolar type
     Dosage: 10 MG MORNING AND EVENING?DAILY DOSE: 30 MILLIGRAM
     Route: 048
     Dates: end: 20250218
  2. VALPROATE SODIUM [Suspect]
     Active Substance: VALPROATE SODIUM
     Indication: Epilepsy
     Dosage: 1250 MG MORINNG AND 1500 MG EVENING?DAILY DOSE: 2750 MILLIGRAM
     Route: 048
     Dates: end: 20250218
  3. DIAZEPAM [Concomitant]
     Active Substance: DIAZEPAM
  4. DIAZEPAM [Concomitant]
     Active Substance: DIAZEPAM
     Dosage: AT BEDTIME?DAILY DOSE: 10 MILLIGRAM
  5. LEVOMEPROMAZINE [Concomitant]
     Active Substance: LEVOMEPROMAZINE
  6. LORMETAZEPAM [Concomitant]
     Active Substance: LORMETAZEPAM
     Dosage: AT BEDTIME?DAILY DOSE: 2 MILLIGRAM
  7. TROPATEPINE HYDROCHLORIDE [Concomitant]
     Active Substance: TROPATEPINE HYDROCHLORIDE
  8. ANETHOLTRITHION [Concomitant]
     Active Substance: ANETHOLTRITHION
  9. LOXAPINE [Concomitant]
     Active Substance: LOXAPINE
  10. VOGALENE [Concomitant]
     Active Substance: METOPIMAZINE
  11. Spasfon [Concomitant]
  12. GAVISCON [Concomitant]
     Active Substance: ALUMINUM HYDROXIDE\MAGNESIUM CARBONATE
     Dosage: 3 SACHETS/DAY?DAILY DOSE: 3 DOSAGE FORM
  13. Dulcolax [Concomitant]
  14. AMOROLFINE HYDROCHLORIDE [Concomitant]
     Active Substance: AMOROLFINE HYDROCHLORIDE
  15. POLYETHYLENE GLYCOLS [Concomitant]
     Active Substance: POLYETHYLENE GLYCOLS
  16. ACETAMINOPHEN [Concomitant]
     Active Substance: ACETAMINOPHEN

REACTIONS (2)
  - Pancreatitis acute [Not Recovered/Not Resolved]
  - Encephalitis [Unknown]

NARRATIVE: CASE EVENT DATE: 20250218
